FAERS Safety Report 20935028 (Version 1)
Quarter: 2022Q2

REPORT INFORMATION
  Report Type: Spontaneous
  Country: NL (occurrence: NL)
  Receive Date: 20220608
  Receipt Date: 20220608
  Transmission Date: 20220720
  Serious: Yes (Life-Threatening, Hospitalization)
  Sender: FDA-Public Use
  Company Number: NL-PRINSTON PHARMACEUTICAL INC.-2022PRN00196

PATIENT
  Age: 31 Year
  Sex: Female

DRUGS (3)
  1. VENLAFAXINE [Suspect]
     Active Substance: VENLAFAXINE HYDROCHLORIDE
     Dosage: 150 MG, EXTENDED-RELEASE
     Route: 048
  2. VENLAFAXINE [Suspect]
     Active Substance: VENLAFAXINE HYDROCHLORIDE
     Dosage: 18 G; 120 CAPSULES
     Route: 048
  3. RIVAROXABAN [Concomitant]
     Active Substance: RIVAROXABAN
     Dosage: 20 MG, 1X/DAY
     Route: 065

REACTIONS (2)
  - Serotonin syndrome [Recovered/Resolved]
  - Multiple organ dysfunction syndrome [Recovered/Resolved]
